FAERS Safety Report 19403682 (Version 1)
Quarter: 2021Q2

REPORT INFORMATION
  Report Type: Spontaneous
  Country: CN (occurrence: CN)
  Receive Date: 20210611
  Receipt Date: 20210611
  Transmission Date: 20210717
  Serious: Yes (Hospitalization)
  Sender: FDA-Public Use
  Company Number: CN-PFIZER INC-2021544073

PATIENT
  Age: 50 Year
  Sex: Female
  Weight: 60 kg

DRUGS (5)
  1. VORICONAZOLE. [Interacting]
     Active Substance: VORICONAZOLE
     Dosage: 400 MG, 2X/DAY
  2. VORICONAZOLE. [Interacting]
     Active Substance: VORICONAZOLE
     Indication: ANTI-INFECTIVE THERAPY
     Dosage: UNK
     Route: 048
  3. CILASTATIN/IMIPENEM [Concomitant]
     Active Substance: CILASTATIN SODIUM\IMIPENEM
     Indication: ANTI-INFECTIVE THERAPY
     Dosage: 1 G, 3X/DAY
  4. VORICONAZOLE. [Suspect]
     Active Substance: VORICONAZOLE
     Indication: ANTI-INFECTIVE THERAPY
     Dosage: 200 MG, 2X/DAY
  5. CARBAMAZEPINE. [Interacting]
     Active Substance: CARBAMAZEPINE
     Indication: EPILEPSY
     Dosage: 200 MG, 3X/DAY
     Route: 048

REACTIONS (4)
  - Drug ineffective [Unknown]
  - Contraindicated product administered [Unknown]
  - Drug interaction [Unknown]
  - Drug level decreased [Unknown]
